FAERS Safety Report 23078497 (Version 1)
Quarter: 2023Q4

REPORT INFORMATION
  Report Type: Spontaneous
  Country: GB (occurrence: GB)
  Receive Date: 20231018
  Receipt Date: 20231018
  Transmission Date: 20240109
  Serious: Yes (Other)
  Sender: FDA-Public Use
  Company Number: None

PATIENT

DRUGS (2)
  1. JULUCA [Suspect]
     Active Substance: DOLUTEGRAVIR SODIUM\RILPIVIRINE HYDROCHLORIDE
     Indication: HIV infection
     Dosage: UNK
     Route: 065
     Dates: start: 20230404, end: 20230512
  2. LORATADINE [Concomitant]
     Active Substance: LORATADINE
     Indication: Rhinitis allergic
     Dosage: UNK
     Route: 065
     Dates: start: 19750401

REACTIONS (1)
  - Muscle spasms [Recovering/Resolving]

NARRATIVE: CASE EVENT DATE: 20230404
